FAERS Safety Report 11943715 (Version 1)
Quarter: 2016Q1

REPORT INFORMATION
  Report Type: Spontaneous
  Country: US (occurrence: US)
  Receive Date: 20160125
  Receipt Date: 20160125
  Transmission Date: 20160526
  Serious: No
  Sender: FDA-Public Use
  Company Number: US-UNITED THERAPEUTICS-UNT-2015-009588

PATIENT
  Sex: Female
  Weight: 72.56 kg

DRUGS (3)
  1. TYVASO [Suspect]
     Active Substance: TREPROSTINIL
     Dosage: UNK
  2. OPSUMIT [Suspect]
     Active Substance: MACITENTAN
     Indication: PRODUCT USED FOR UNKNOWN INDICATION
     Dosage: UNKNOWN
     Route: 065
  3. TYVASO [Suspect]
     Active Substance: TREPROSTINIL
     Indication: PULMONARY HYPERTENSION
     Dosage: 18-54 MICROGRAMS, QID
     Dates: start: 20150227

REACTIONS (5)
  - Secretion discharge [Unknown]
  - Pruritus generalised [Unknown]
  - Dizziness [Unknown]
  - Oedema [Unknown]
  - Dyspnoea exertional [Recovering/Resolving]

NARRATIVE: CASE EVENT DATE: 2015
